FAERS Safety Report 22238774 (Version 1)
Quarter: 2023Q2

REPORT INFORMATION
  Report Type: Spontaneous
  Country: US (occurrence: US)
  Receive Date: 20230421
  Receipt Date: 20230421
  Transmission Date: 20230721
  Serious: No
  Sender: FDA-Public Use
  Company Number: US-ALMIRALL, LLC-2022AQU000265

PATIENT

DRUGS (1)
  1. ACZONE [Suspect]
     Active Substance: DAPSONE
     Indication: Acne
     Dosage: UNK, QD
     Route: 061
     Dates: start: 20220613

REACTIONS (8)
  - Gingival bleeding [Unknown]
  - Skin wound [Unknown]
  - Mood altered [Unknown]
  - Sunburn [Unknown]
  - Anxiety [Unknown]
  - Yellow skin [Unknown]
  - Swelling of eyelid [Unknown]
  - Drug ineffective [Unknown]

NARRATIVE: CASE EVENT DATE: 20220101
